FAERS Safety Report 10229970 (Version 1)
Quarter: 2014Q2

REPORT INFORMATION
  Report Type: Spontaneous
  Country: US (occurrence: None)
  Receive Date: 20140506
  Receipt Date: 20140506
  Transmission Date: 20141212
  Serious: Yes (Other)
  Sender: FDA-Public Use
  Company Number: 1205254

PATIENT
  Age: 66 Year
  Sex: Female
  Weight: 63.96 kg

DRUGS (4)
  1. AVASTIN [Suspect]
     Indication: LUNG NEOPLASM MALIGNANT
     Dosage: (15 MG/KG, 1 IN 1 TOTAL), INTRAVENOUS (NOT OTHERWISE SPECIFIED)?
     Route: 042
     Dates: start: 20130315, end: 20130315
  2. ALIMTA (PEMETREXED DISODIUM) [Concomitant]
  3. TAXOL (PACLITAXEL) [Concomitant]
  4. CARBOPLATIN (CARBOPLATIN) [Concomitant]

REACTIONS (1)
  - Transient ischaemic attack [None]
